FAERS Safety Report 8030384-7 (Version None)
Quarter: 2012Q1

REPORT INFORMATION
  Report Type: 
  Country: None (occurrence: None)
  Receive Date: 20120109
  Receipt Date: 20120109
  Transmission Date: 20120608
  Serious: No
  Sender: FDA-Public Use
  Company Number: None

PATIENT
  Age: 49 Year
  Sex: Female
  Weight: 69.399 kg

DRUGS (1)
  1. CITALOPRAM HYDROBROMIDE [Suspect]
     Indication: ANXIETY
     Dosage: 20MG
     Route: 048

REACTIONS (5)
  - WITHDRAWAL SYNDROME [None]
  - HEADACHE [None]
  - PRODUCT MEASURED POTENCY ISSUE [None]
  - DIZZINESS [None]
  - HEART RATE INCREASED [None]
